FAERS Safety Report 5143439-1 (Version None)
Quarter: 2006Q4

REPORT INFORMATION
  Report Type: 
  Country: None (occurrence: None)
  Receive Date: 20061103
  Receipt Date: 20061027
  Transmission Date: 20070319
  Serious: Yes (Death, Hospitalization)
  Sender: FDA-Public Use
  Company Number: US-MERCK-0610USA14958

PATIENT
  Age: 69 Year
  Sex: Male

DRUGS (5)
  1. FOSAMAX [Suspect]
     Indication: OSTEOPOROSIS
     Route: 048
     Dates: start: 20030101, end: 20060401
  2. DIURETIC (UNSPECIFIED) [Concomitant]
     Route: 065
  3. FLOMAX (MORNIFLUMATE) [Concomitant]
     Route: 065
  4. NEXIUM [Concomitant]
     Route: 065
  5. DILTIAZEM CD [Concomitant]
     Route: 065

REACTIONS (1)
  - OESOPHAGEAL PERFORATION [None]
